FAERS Safety Report 5279075-6 (Version None)
Quarter: 2007Q1

REPORT INFORMATION
  Report Type: 
  Country: None (occurrence: None)
  Receive Date: 20070328
  Receipt Date: 20060808
  Transmission Date: 20070707
  Serious: No
  Sender: FDA-Public Use
  Company Number: US-AMGEN-KDL189238

PATIENT
  Sex: Male

DRUGS (5)
  1. NEULASTA [Suspect]
     Indication: CHEMOTHERAPY
     Route: 058
  2. METHOTREXATE [Concomitant]
     Route: 065
  3. DOXORUBICIN HYDROCHLORIDE [Concomitant]
     Route: 065
  4. CISPLATIN [Concomitant]
     Route: 065
  5. VINBLASTINE SULFATE [Concomitant]
     Route: 065

REACTIONS (1)
  - PHARYNGOLARYNGEAL PAIN [None]
